FAERS Safety Report 6842899-5 (Version None)
Quarter: 2010Q3

REPORT INFORMATION
  Report Type: 
  Country: None (occurrence: None)
  Receive Date: 20100714
  Receipt Date: 20070813
  Transmission Date: 20110219
  Serious: No
  Sender: FDA-Public Use
  Company Number: US-PFIZER INC-2007067381

PATIENT
  Sex: Female
  Weight: 47.7 kg

DRUGS (9)
  1. CHANTIX [Suspect]
     Indication: SMOKING CESSATION THERAPY
     Dates: start: 20070810, end: 20070812
  2. LIPITOR [Concomitant]
  3. CLONIDINE [Concomitant]
  4. CETIRIZINE HCL AND PSEUDOEPHEDRINE [Concomitant]
  5. LISINOPRIL [Concomitant]
  6. ZOLPIDEM [Concomitant]
  7. AMLODIPINE [Concomitant]
  8. VENLAFAXINE HYDROCHLORIDE [Concomitant]
  9. ACETYLSALICYLIC ACID [Concomitant]

REACTIONS (2)
  - FEELING ABNORMAL [None]
  - NAUSEA [None]
